FAERS Safety Report 10041242 (Version 2)
Quarter: 2014Q1

REPORT INFORMATION
  Report Type: Report from Study
  Country: CA (occurrence: CA)
  Receive Date: 20140327
  Receipt Date: 20140327
  Transmission Date: 20141002
  Serious: Yes (Death, Other)
  Sender: FDA-Public Use
  Company Number: CA-ASTRAZENECA-2013SE65770

PATIENT
  Age: 24761 Day
  Sex: Male

DRUGS (5)
  1. ZOLADEX [Suspect]
     Indication: PROSTATE CANCER
     Route: 058
     Dates: start: 20121109, end: 20140225
  2. TAMSULOSIN [Concomitant]
  3. PREDNISONE [Concomitant]
  4. XGEVA [Concomitant]
  5. XTANDI [Concomitant]

REACTIONS (2)
  - Death [Fatal]
  - Haemoglobin decreased [Recovered/Resolved]
